FAERS Safety Report 8318707 (Version 3)
Quarter: 2013Q1

REPORT INFORMATION
  Report Type: Spontaneous
  Country: US (occurrence: US)
  Receive Date: 20120103
  Receipt Date: 20130222
  Transmission Date: 20140127
  Serious: Yes (Life-Threatening, Congenital Anomaly, Other)
  Sender: FDA-Public Use
  Company Number: US-PFIZER INC-2011289484

PATIENT
  Sex: Female

DRUGS (20)
  1. ZOLOFT [Suspect]
     Indication: DEPRESSION
     Dosage: UNK
     Route: 064
     Dates: start: 200303
  2. ZOLOFT [Suspect]
     Indication: ANXIETY
     Dosage: 100 MG, UNK
     Route: 064
     Dates: start: 20040322
  3. ZOLOFT [Suspect]
     Dosage: 50 MG, UNK
     Route: 064
     Dates: start: 20040621
  4. CHROMAGEN [Concomitant]
     Dosage: UNK
     Route: 064
  5. PREDNISONE [Concomitant]
     Dosage: 10 MG, UNK
     Route: 064
  6. AMOXICILLIN [Concomitant]
     Dosage: 500 MG, UNK
     Route: 064
  7. CEPHALEXIN [Concomitant]
     Dosage: 500 MG, UNK
     Route: 064
  8. HYDROXYZINE [Concomitant]
     Dosage: 10 MG, UNK
     Route: 064
  9. METRONIDAZOLE [Concomitant]
     Dosage: 500 MG, UNK
     Route: 064
  10. NIFEDIPINE [Concomitant]
     Dosage: 10 MG, UNK
     Route: 064
  11. TRIAMINIC [Concomitant]
     Dosage: UNK
     Route: 064
  12. PRENATAL VITAMINS [Concomitant]
     Dosage: UNK
     Route: 064
  13. PHENERGAN [Concomitant]
     Dosage: UNK
     Route: 064
  14. OXYCODONE [Concomitant]
     Dosage: UNK
     Route: 064
  15. DIFLUCAN [Concomitant]
     Dosage: UNK
     Route: 064
  16. CEFUROXIME [Concomitant]
     Dosage: UNK
     Route: 064
  17. MIGRAN [Concomitant]
     Dosage: UNK
     Route: 064
  18. PROPOXYPHENE [Concomitant]
     Dosage: UNK
     Route: 064
  19. PREMESISRX [Concomitant]
     Dosage: UNK
     Route: 064
  20. NITROFURANTOIN [Concomitant]
     Dosage: UNK
     Route: 064

REACTIONS (4)
  - Maternal exposure timing unspecified [Unknown]
  - Atrial septal defect [Unknown]
  - Congenital anomaly [Unknown]
  - Pulmonary valve stenosis [Unknown]
